FAERS Safety Report 10892794 (Version 1)
Quarter: 2015Q1

REPORT INFORMATION
  Report Type: Spontaneous
  Country: DE (occurrence: DE)
  Receive Date: 20150306
  Receipt Date: 20150306
  Transmission Date: 20150721
  Serious: Yes (Death, Hospitalization)
  Sender: FDA-Public Use
  Company Number: DE-JNJFOC-20141200494

PATIENT
  Age: 72 Year
  Sex: Male
  Weight: 64 kg

DRUGS (2)
  1. IMBRUVICA [Suspect]
     Active Substance: IBRUTINIB
     Indication: CHRONIC LYMPHOCYTIC LEUKAEMIA
     Route: 065
     Dates: start: 20141024, end: 20141210
  2. CIPROBAY [Concomitant]
     Active Substance: CIPROFLOXACIN
     Indication: COUGH
     Dosage: 500

REACTIONS (5)
  - Pneumonia [Fatal]
  - Disease progression [Fatal]
  - Escherichia urinary tract infection [Unknown]
  - Clostridium difficile colitis [Unknown]
  - Cachexia [Fatal]

NARRATIVE: CASE EVENT DATE: 201412
